FAERS Safety Report 12799272 (Version 3)
Quarter: 2016Q4

REPORT INFORMATION
  Report Type: Spontaneous
  Country: FR (occurrence: FR)
  Receive Date: 20160930
  Receipt Date: 20161028
  Transmission Date: 20170207
  Serious: Yes (Hospitalization)
  Sender: FDA-Public Use
  Company Number: FR-ASTRAZENECA-2016SF02698

PATIENT
  Age: 66 Year
  Sex: Male

DRUGS (16)
  1. SYMBICORT [Suspect]
     Active Substance: BUDESONIDE\FORMOTEROL FUMARATE DIHYDRATE
     Indication: CHRONIC OBSTRUCTIVE PULMONARY DISEASE
     Dosage: 320/9 UG PER DOSE ONE INHALATION TWO TIMES A DAY
     Route: 055
  2. IXEL [Suspect]
     Active Substance: MILNACIPRAN HYDROCHLORIDE
     Indication: DEPRESSION
     Route: 048
  3. PROCORALAN [Concomitant]
     Active Substance: IVABRADINE
  4. SULFARLEM [Concomitant]
     Active Substance: ANETHOLTRITHION
  5. IXEL [Suspect]
     Active Substance: MILNACIPRAN HYDROCHLORIDE
     Indication: DEPRESSION
     Route: 048
  6. VOLTARENE [Concomitant]
     Active Substance: DICLOFENAC SODIUM
  7. IXPRIM [Suspect]
     Active Substance: ACETAMINOPHEN\TRAMADOL HYDROCHLORIDE
     Indication: PAIN
     Dosage: 37.5 MG/ 325 MG 1 DF 3 TIMES PER DAY
     Route: 048
  8. NOVORAPID [Concomitant]
     Active Substance: INSULIN ASPART
  9. GLUCOPHAGE [Concomitant]
     Active Substance: METFORMIN HYDROCHLORIDE
  10. LEVEMIR [Concomitant]
     Active Substance: INSULIN DETEMIR
  11. VICTOZA [Concomitant]
     Active Substance: LIRAGLUTIDE
  12. AXELER [Concomitant]
     Active Substance: AMLODIPINE BESYLATE\OLMESARTAN MEDOXOMIL
     Dosage: 40MG/10MG
  13. PRESTOLE [Concomitant]
  14. PRAVADUAL [Concomitant]
     Active Substance: ASPIRIN\PRAVASTATIN
  15. GLYCEROL\PARAFFIN [Concomitant]
     Active Substance: GLYCERIN\PARAFFIN
  16. DOLIPRANE [Concomitant]
     Active Substance: ACETAMINOPHEN

REACTIONS (2)
  - Pseudophaeochromocytoma [Not Recovered/Not Resolved]
  - Squamous cell carcinoma [Not Recovered/Not Resolved]

NARRATIVE: CASE EVENT DATE: 201406
